FAERS Safety Report 5061761-4 (Version None)
Quarter: 2006Q3

REPORT INFORMATION
  Report Type: 
  Country: None (occurrence: None)
  Receive Date: 20060726
  Receipt Date: 20060111
  Transmission Date: 20061208
  Serious: No
  Sender: FDA-Public Use
  Company Number: S2006US00226

PATIENT
  Age: 69 Year
  Sex: Female

DRUGS (3)
  1. DYAZIDE [Suspect]
     Route: 048
  2. NORVASC [Suspect]
     Route: 065
  3. ATENOLOL [Suspect]
     Route: 065

REACTIONS (1)
  - DRUG INEFFECTIVE [None]
